FAERS Safety Report 4886283-2 (Version None)
Quarter: 2006Q1

REPORT INFORMATION
  Report Type: 
  Country: None (occurrence: None)
  Receive Date: 20060118
  Receipt Date: 20060106
  Transmission Date: 20060701
  Serious: Yes (Hospitalization, Other)
  Sender: FDA-Public Use
  Company Number: 2006005309

PATIENT
  Age: 35 Year
  Sex: Male
  Weight: 68.0396 kg

DRUGS (4)
  1. GEODON [Suspect]
     Indication: SCHIZOAFFECTIVE DISORDER
     Dosage: 1600 MG (800 MG, 2 IN 1 D), UNKNOWN
     Dates: start: 20050101
  2. DEPAKOTE [Concomitant]
  3. ATIVAN [Concomitant]
  4. LUNESTA [Concomitant]

REACTIONS (8)
  - ANXIETY [None]
  - ARRHYTHMIA [None]
  - CHEST PAIN [None]
  - CONSTIPATION [None]
  - DYSPNOEA [None]
  - PLATELET COUNT DECREASED [None]
  - PULMONARY THROMBOSIS [None]
  - WHITE BLOOD CELL COUNT DECREASED [None]
